FAERS Safety Report 6804932-6 (Version None)
Quarter: 2010Q2

REPORT INFORMATION
  Report Type: 
  Country: None (occurrence: None)
  Receive Date: 20100628
  Receipt Date: 20070717
  Transmission Date: 20101027
  Serious: No
  Sender: FDA-Public Use
  Company Number: US-PFIZER INC-2007058798

PATIENT
  Sex: Male
  Weight: 109 kg

DRUGS (5)
  1. XALATAN [Suspect]
     Indication: GLAUCOMA
     Route: 031
     Dates: start: 20070101
  2. POTASSIUM [Concomitant]
  3. MAGNESIUM [Concomitant]
  4. GLUCOSAMINE [Concomitant]
     Dosage: 2 PILLS
  5. CENTRUM SILVER [Concomitant]

REACTIONS (2)
  - EYE HAEMORRHAGE [None]
  - OCULAR HYPERAEMIA [None]
